FAERS Safety Report 6314794-1 (Version None)
Quarter: 2009Q3

REPORT INFORMATION
  Report Type: 
  Country: None (occurrence: None)
  Receive Date: 20090819
  Receipt Date: 20090817
  Transmission Date: 20100115
  Serious: Yes (Life-Threatening, Hospitalization, Disabling)
  Sender: FDA-Public Use
  Company Number: FR-ROCHE-647752

PATIENT
  Sex: Male

DRUGS (3)
  1. CAPECITABINE [Suspect]
     Indication: GASTRIC CANCER
     Dosage: PATIENT WAS RANDOMISED IN THE FOLFIRI FIRST LINE ARM, THEN HE SWITCHED ON ECC ARM.
     Route: 048
     Dates: start: 20080211
  2. EPIRUBICIN [Suspect]
     Indication: GASTRIC CANCER
     Dosage: PATIENT WAS RANDOMISED IN THE FOLFIRI FIRST LINE ARM, THEN HE SWITCHED ON ECC ARM.
     Route: 042
     Dates: start: 20080211
  3. CISPLATIN [Suspect]
     Indication: GASTRIC CANCER
     Dosage: PATIENT WAS RANDOMISED IN THE FOLFIRI FIRST LINE ARM, THEN HE SWITCHED ON ECC ARM.
     Route: 042
     Dates: start: 20080211

REACTIONS (3)
  - BONE MARROW FAILURE [None]
  - FEBRILE NEUTROPENIA [None]
  - GENERAL PHYSICAL HEALTH DETERIORATION [None]
